FAERS Safety Report 6636621-5 (Version None)
Quarter: 2010Q1

REPORT INFORMATION
  Report Type: 
  Country: None (occurrence: None)
  Receive Date: 20100316
  Receipt Date: 20100309
  Transmission Date: 20100710
  Serious: Yes (Hospitalization, Disabling)
  Sender: FDA-Public Use
  Company Number: -MERCK-1003USA01723

PATIENT
  Age: 33 Year
  Sex: Male

DRUGS (2)
  1. SINGULAIR [Suspect]
     Indication: ASTHMA
     Route: 048
     Dates: start: 20091101, end: 20100222
  2. SYMBICORT [Concomitant]
     Indication: ASTHMA
     Route: 055
     Dates: start: 20090101

REACTIONS (1)
  - ALLERGIC GRANULOMATOUS ANGIITIS [None]
